FAERS Safety Report 10036503 (Version 1)
Quarter: 2014Q1

REPORT INFORMATION
  Report Type: Spontaneous
  Country: BR (occurrence: BR)
  Receive Date: 20140326
  Receipt Date: 20140326
  Transmission Date: 20141002
  Serious: Yes (Other)
  Sender: FDA-Public Use
  Company Number: PHHY2014BR035266

PATIENT
  Age: 60 Year
  Sex: Female

DRUGS (2)
  1. ZOMETA [Suspect]
     Indication: METASTASES TO BONE
     Dosage: 4 MG, EVERY 3 TO 4 WEEKS
     Route: 042
  2. TAMOXIFEN [Suspect]
     Indication: BREAST CANCER

REACTIONS (6)
  - Osteonecrosis of jaw [Unknown]
  - Pain [Unknown]
  - Metastases to bone [Unknown]
  - Metastases to spine [Unknown]
  - Metastases to lung [Unknown]
  - Mass [Unknown]
